FAERS Safety Report 6917784-0 (Version None)
Quarter: 2010Q3

REPORT INFORMATION
  Report Type: 
  Country: None (occurrence: None)
  Receive Date: 20100810
  Receipt Date: 20100729
  Transmission Date: 20110219
  Serious: Yes (Hospitalization)
  Sender: FDA-Public Use
  Company Number: FR-PFIZER INC-2010095108

PATIENT
  Age: 50 Year
  Sex: Female

DRUGS (1)
  1. SALAZOPYRINE [Suspect]
     Dosage: 500 MG, 3X/DAY
     Dates: start: 20100701

REACTIONS (2)
  - ERYTHEMA [None]
  - HYPERTHERMIA [None]
